FAERS Safety Report 25754006 (Version 2)
Quarter: 2025Q3

REPORT INFORMATION
  Report Type: Spontaneous
  Country: JP (occurrence: JP)
  Receive Date: 20250903
  Receipt Date: 20250925
  Transmission Date: 20251020
  Serious: Yes (Other)
  Sender: AMGEN
  Company Number: JP-AMGEN-JPNSP2025173929

PATIENT
  Age: 1 Month
  Sex: Male

DRUGS (5)
  1. BUPHENYL [Suspect]
     Active Substance: SODIUM PHENYLBUTYRATE
     Indication: Ornithine transcarbamoylase deficiency
     Dosage: 700 MILLIGRAM, QD
     Route: 048
     Dates: start: 202508
  2. SODIUM BENZOATE [Concomitant]
     Active Substance: SODIUM BENZOATE
     Indication: Ornithine transcarbamoylase deficiency
     Dosage: 700 MILLIGRAM, QD
     Route: 040
  3. ARGININE HYDROCHLORIDE [Concomitant]
     Active Substance: ARGININE HYDROCHLORIDE
     Indication: Ornithine transcarbamoylase deficiency
     Dosage: 400 MILLIGRAM, QD
     Route: 040
     Dates: start: 202508
  4. CARNITINE CHLORIDE [Concomitant]
     Active Substance: CARNITINE CHLORIDE
     Indication: Ornithine transcarbamoylase deficiency
     Dosage: 500 MILLIGRAM, QD
     Route: 048
     Dates: start: 202508
  5. CITRULLINE [Concomitant]
     Active Substance: CITRULLINE
     Indication: Ornithine transcarbamoylase deficiency
     Dosage: 600 MILLIGRAM, QD
     Route: 048
     Dates: start: 202508

REACTIONS (1)
  - Renal tubular acidosis [Not Recovered/Not Resolved]

NARRATIVE: CASE EVENT DATE: 20250801
